FAERS Safety Report 25830973 (Version 1)
Quarter: 2025Q3

REPORT INFORMATION
  Report Type: Spontaneous
  Country: US (occurrence: None)
  Receive Date: 20250919
  Receipt Date: 20250919
  Transmission Date: 20251020
  Serious: Yes (Death)
  Sender: FDA-CTU
  Company Number: None

PATIENT
  Age: 63 Year
  Sex: Female

DRUGS (1)
  1. XALKORI [Suspect]
     Active Substance: CRIZOTINIB
     Indication: Neoplasm malignant
     Dosage: OTHER QUANTITY : 1 CS;?FREQUENCY : TWICE A DAY;?
     Route: 048
     Dates: start: 20240822, end: 20250814

REACTIONS (1)
  - Death [None]

NARRATIVE: CASE EVENT DATE: 20250814
